FAERS Safety Report 7798778-2 (Version None)
Quarter: 2011Q4

REPORT INFORMATION
  Report Type: 
  Country: None (occurrence: None)
  Receive Date: 20111006
  Receipt Date: 20110928
  Transmission Date: 20120403
  Serious: Yes (Hospitalization)
  Sender: FDA-Public Use
  Company Number: PHHY2011TR79874

PATIENT
  Age: 7 Year
  Sex: Female

DRUGS (2)
  1. PENICILLIN V [Suspect]
     Indication: PHARYNGITIS
     Route: 048
  2. PENICILLIN V [Suspect]
     Route: 042

REACTIONS (12)
  - PYREXIA [None]
  - GENERALISED OEDEMA [None]
  - LYMPHADENOPATHY [None]
  - RASH [None]
  - BODY TEMPERATURE INCREASED [None]
  - DRUG RASH WITH EOSINOPHILIA AND SYSTEMIC SYMPTOMS [None]
  - RASH MACULO-PAPULAR [None]
  - EOSINOPHILIA [None]
  - RASH PRURITIC [None]
  - LEUKOCYTOSIS [None]
  - LYMPHOCYTE MORPHOLOGY ABNORMAL [None]
  - FACE OEDEMA [None]
